FAERS Safety Report 6937623-1 (Version None)
Quarter: 2010Q3

REPORT INFORMATION
  Report Type: 
  Country: None (occurrence: None)
  Receive Date: 20100823
  Receipt Date: 20100823
  Transmission Date: 20110219
  Serious: Yes (Other)
  Sender: FDA-Public Use
  Company Number: None

PATIENT
  Sex: Female
  Weight: 68.0396 kg

DRUGS (2)
  1. CEFAPIME 2GRAMS SAGENT [Suspect]
     Indication: POST PROCEDURAL CELLULITIS
     Dosage: 2GRAMS EVERY 12 HOURS IONTOPHORES
     Dates: start: 20100728, end: 20100818
  2. CEEFAPIME 1 GRAM SAGENT [Suspect]

REACTIONS (1)
  - RASH GENERALISED [None]
